FAERS Safety Report 4736707-6 (Version None)
Quarter: 2005Q3

REPORT INFORMATION
  Report Type: 
  Country: None (occurrence: None)
  Receive Date: 20050802
  Receipt Date: 20050720
  Transmission Date: 20060218
  Serious: Yes (Other)
  Sender: FDA-Public Use
  Company Number: 2005058915

PATIENT
  Age: 64 Year
  Sex: Female

DRUGS (3)
  1. BEXTRA [Suspect]
     Indication: EXOSTOSIS
     Dosage: 40 MG (40 MG, 1 IN 1 D), ORAL
     Route: 048
     Dates: start: 20050106
  2. PROPRANOLOL [Concomitant]
  3. CAPTOPRIL [Concomitant]

REACTIONS (2)
  - ERYTHEMA [None]
  - PRURITUS [None]
